FAERS Safety Report 12120797 (Version 1)
Quarter: 2016Q1

REPORT INFORMATION
  Report Type: Spontaneous
  Country: US (occurrence: US)
  Receive Date: 20160226
  Receipt Date: 20160226
  Transmission Date: 20160526
  Serious: No
  Sender: FDA-Public Use
  Company Number: US-ALLERGAN-1313541US

PATIENT
  Age: 94 Year
  Sex: Female

DRUGS (1)
  1. REFRESH OPTIVE SENSITIVE [Suspect]
     Active Substance: CARBOXYMETHYLCELLULOSE SODIUM\GLYCERIN
     Indication: DRY EYE
     Route: 047

REACTIONS (4)
  - Instillation site pain [Recovered/Resolved]
  - Drug ineffective [Unknown]
  - Drug hypersensitivity [Unknown]
  - Expired product administered [Unknown]
